FAERS Safety Report 7747574-0 (Version None)
Quarter: 2011Q3

REPORT INFORMATION
  Report Type: 
  Country: None (occurrence: None)
  Receive Date: 20110913
  Receipt Date: 20110831
  Transmission Date: 20111222
  Serious: Yes (Other)
  Sender: FDA-Public Use
  Company Number: US-ELI_LILLY_AND_COMPANY-US201103004139

PATIENT
  Sex: Female
  Weight: 62.585 kg

DRUGS (5)
  1. CYMBALTA [Suspect]
     Dosage: 100 MG, UNK
  2. PROVIGIL [Concomitant]
     Dosage: UNK, PRN
  3. CYMBALTA [Suspect]
     Indication: MAJOR DEPRESSION
     Dosage: 60 MG, BID
     Route: 048
     Dates: start: 20070405
  4. AMBIEN CR [Concomitant]
     Dosage: 12.5 MG, EACH EVENING
  5. XANAX                                   /USA/ [Concomitant]
     Dosage: 25 MG, PRN

REACTIONS (3)
  - AGGRESSION [None]
  - PERSONALITY CHANGE [None]
  - PHYSICAL ASSAULT [None]
